FAERS Safety Report 9507613 (Version 1)
Quarter: 2013Q3

REPORT INFORMATION
  Report Type: Spontaneous
  Country: US (occurrence: None)
  Receive Date: 20130906
  Receipt Date: 20130906
  Transmission Date: 20140515
  Serious: Yes (Hospitalization, Disabling)
  Sender: FDA-Public Use
  Company Number: None

PATIENT
  Age: 56 Year
  Sex: Female
  Weight: 61.69 kg

DRUGS (1)
  1. CIPRO [Suspect]
     Indication: DIVERTICULITIS
     Dates: start: 20130510, end: 20130723

REACTIONS (7)
  - Fatigue [None]
  - Nausea [None]
  - Vomiting [None]
  - Arthralgia [None]
  - Movement disorder [None]
  - Weight decreased [None]
  - Musculoskeletal pain [None]
